FAERS Safety Report 7318079-6 (Version None)
Quarter: 2011Q1

REPORT INFORMATION
  Report Type: 
  Country: None (occurrence: None)
  Receive Date: 20110228
  Receipt Date: 20110218
  Transmission Date: 20110831
  Serious: Yes (Hospitalization)
  Sender: FDA-Public Use
  Company Number: US-BIOGENIDEC-2010BI024203

PATIENT
  Age: 71 Year
  Sex: Female

DRUGS (2)
  1. AVONEX [Suspect]
     Indication: MULTIPLE SCLEROSIS
     Route: 030
  2. AVONEX [Suspect]
     Route: 030
     Dates: start: 19981201

REACTIONS (6)
  - WEIGHT DECREASED [None]
  - SPINAL FRACTURE [None]
  - DRUG INEFFECTIVE [None]
  - LOCALISED INFECTION [None]
  - HYPERTENSION [None]
  - ROAD TRAFFIC ACCIDENT [None]
